FAERS Safety Report 25223289 (Version 1)
Quarter: 2025Q2

REPORT INFORMATION
  Report Type: Report from Study
  Country: US (occurrence: US)
  Receive Date: 20250422
  Receipt Date: 20250422
  Transmission Date: 20250717
  Serious: No
  Sender: DR REDDYS
  Company Number: US-DRL-USA-USA/2025/04/005213

PATIENT
  Sex: Female
  Weight: 38.01 kg

DRUGS (1)
  1. JAVYGTOR [Suspect]
     Active Substance: SAPROPTERIN DIHYDROCHLORIDE
     Indication: Phenylketonuria
     Dosage: DISSOLVE THREE 500 MG POWDER PACKETS IN 4 TO 8 OUNCES OF WATER OR APPLE JUICE AND TAKE ONCE DAILY WI
     Route: 048

REACTIONS (4)
  - Constipation [Unknown]
  - Abdominal pain [Unknown]
  - Overdose [Unknown]
  - Product prescribing error [Unknown]
